FAERS Safety Report 24554670 (Version 1)
Quarter: 2024Q4

REPORT INFORMATION
  Report Type: Spontaneous
  Country: US (occurrence: US)
  Receive Date: 20241028
  Receipt Date: 20241028
  Transmission Date: 20250115
  Serious: Yes (Hospitalization, Other)
  Sender: AMGEN
  Company Number: US-AMGEN-USASP2024209150

PATIENT
  Sex: Female

DRUGS (3)
  1. OTEZLA [Suspect]
     Active Substance: APREMILAST
     Indication: Psoriatic arthropathy
     Dosage: 30 MILLIGRAM, BID
     Route: 048
  2. OTEZLA [Suspect]
     Active Substance: APREMILAST
     Dosage: 30 MILLIGRAM, BID (ON AND OFF OTEZLA)
     Route: 048
  3. TALTZ [Concomitant]
     Active Substance: IXEKIZUMAB
     Indication: Psoriatic arthropathy
     Dosage: UNK

REACTIONS (6)
  - Gastric antral vascular ectasia [Unknown]
  - Psoriatic arthropathy [Unknown]
  - Gastric ulcer [Unknown]
  - Haemorrhoidal haemorrhage [Unknown]
  - Weight decreased [Unknown]
  - Cerebral disorder [Unknown]
